FAERS Safety Report 9766324 (Version 1)
Quarter: 2013Q4

REPORT INFORMATION
  Report Type: Spontaneous
  Country: US (occurrence: US)
  Receive Date: 20131217
  Receipt Date: 20131217
  Transmission Date: 20140711
  Serious: No
  Sender: FDA-Public Use
  Company Number: US-GLAXOSMITHKLINE-A1025898A

PATIENT
  Age: 50 Year
  Sex: Male

DRUGS (10)
  1. VOTRIENT [Suspect]
     Indication: MALIGNANT URINARY TRACT NEOPLASM
     Dosage: 800MG PER DAY
     Route: 048
     Dates: start: 20130329
  2. CELEBREX [Concomitant]
  3. LORAZEPAM [Concomitant]
  4. SENNA [Concomitant]
  5. COLACE [Concomitant]
  6. CENTRUM [Concomitant]
  7. CALCIUM CITRATE [Concomitant]
  8. IBUPROFEN [Concomitant]
  9. XGEVA [Concomitant]
  10. ADVIL [Concomitant]

REACTIONS (2)
  - Musculoskeletal pain [Unknown]
  - Muscle spasms [Unknown]
